APPROVED DRUG PRODUCT: ATENOLOL
Active Ingredient: ATENOLOL
Strength: 50MG
Dosage Form/Route: TABLET;ORAL
Application: A078254 | Product #002
Applicant: NORTHSTAR HEALTHCARE HOLDINGS LTD
Approved: Sep 25, 2009 | RLD: No | RS: No | Type: DISCN